FAERS Safety Report 7638114-5 (Version None)
Quarter: 2011Q3

REPORT INFORMATION
  Report Type: 
  Country: None (occurrence: None)
  Receive Date: 20110727
  Receipt Date: 20110713
  Transmission Date: 20111222
  Serious: Yes (Hospitalization, Other)
  Sender: FDA-Public Use
  Company Number: US-RANBAXY-2011RR-46264

PATIENT
  Sex: Female

DRUGS (3)
  1. CIPROFLOXACIN [Suspect]
     Indication: CYSTITIS
     Dosage: UNK
     Route: 065
     Dates: start: 20080820, end: 20080826
  2. LEVAQUIN [Suspect]
     Dosage: 500 MG, QD
     Route: 065
     Dates: start: 20080711, end: 20080715
  3. LEVAQUIN [Suspect]
     Indication: CYSTITIS
     Dosage: UNK
     Route: 048
     Dates: start: 20080701

REACTIONS (2)
  - PLANTAR FASCIITIS [None]
  - TENDON RUPTURE [None]
